FAERS Safety Report 6098023-2 (Version None)
Quarter: 2009Q1

REPORT INFORMATION
  Report Type: 
  Country: None (occurrence: None)
  Receive Date: 20090227
  Receipt Date: 20090219
  Transmission Date: 20090719
  Serious: Yes (Hospitalization)
  Sender: FDA-Public Use
  Company Number: CH-ASTRAZENECA-2009PK00633

PATIENT
  Age: 63 Year
  Sex: Female

DRUGS (8)
  1. ARIMIDEX [Suspect]
     Indication: BREAST CANCER FEMALE
     Route: 048
     Dates: start: 20030101, end: 20081203
  2. CORDARONE [Suspect]
     Route: 048
     Dates: start: 20080601, end: 20081206
  3. CARVEDILOL [Suspect]
     Route: 048
     Dates: start: 20080601, end: 20081203
  4. RASILEZ [Suspect]
     Route: 048
     Dates: start: 20080601, end: 20081203
  5. ALDOZONE [Suspect]
     Indication: CARDIAC FAILURE CONGESTIVE
     Route: 048
     Dates: start: 20050101, end: 20081203
  6. HYDROXYUREA [Suspect]
     Indication: MYELOPROLIFERATIVE DISORDER
     Route: 048
     Dates: start: 19980101, end: 20081203
  7. SINTROM [Concomitant]
     Indication: MYELOPROLIFERATIVE DISORDER
     Route: 048
     Dates: start: 19980101
  8. OMEPRAZOLE [Concomitant]
     Route: 048
     Dates: start: 19980101

REACTIONS (11)
  - ATRIOVENTRICULAR BLOCK [None]
  - ATRIOVENTRICULAR BLOCK COMPLETE [None]
  - CHOLESTASIS [None]
  - HEPATIC ISCHAEMIA [None]
  - HEPATIC VEIN THROMBOSIS [None]
  - HEPATITIS CHOLESTATIC [None]
  - MULTI-ORGAN FAILURE [None]
  - NASOPHARYNGITIS [None]
  - RESPIRATORY FAILURE [None]
  - SEPSIS [None]
  - VIRAL INFECTION [None]
